FAERS Safety Report 9393789 (Version 1)
Quarter: 2013Q3

REPORT INFORMATION
  Report Type: Spontaneous
  Country: US (occurrence: US)
  Receive Date: 20130710
  Receipt Date: 20130710
  Transmission Date: 20140515
  Serious: Yes (Life-Threatening)
  Sender: FDA-Public Use
  Company Number: US-CTI_01588_2013

PATIENT
  Sex: 0

DRUGS (1)
  1. CUROSURF [Suspect]
     Indication: NEONATAL RESPIRATORY DISTRESS SYNDROME
     Dosage: [80 MG/ML]
     Route: 007

REACTIONS (3)
  - Hypotension [Unknown]
  - Cerebral haemorrhage [Unknown]
  - Pulmonary haemorrhage [Unknown]
